FAERS Safety Report 8786625 (Version 1)
Quarter: 2012Q4

REPORT INFORMATION
  Report Type: Report from Study
  Country: US (occurrence: US)
  Receive Date: 20120914
  Receipt Date: 20120914
  Transmission Date: 20130627
  Serious: No
  Sender: FDA-Public Use
  Company Number: US-VERTEX PHARMACEUTICAL INC.-AE-2012-011256

PATIENT
  Age: 57 Year
  Sex: Female
  Weight: 102.73 kg

DRUGS (11)
  1. INCIVEK [Suspect]
     Indication: HEPATITIS C
     Route: 048
  2. PEGASYS PROCLICK [Concomitant]
     Indication: HEPATITIS C
  3. RIBAVIRIN [Concomitant]
     Indication: HEPATITIS C
  4. LUMIGAN [Concomitant]
  5. METOPROLOL T [Concomitant]
  6. OMEPRAZOLE [Concomitant]
  7. POTASSIUM [Concomitant]
  8. VITAMIN C [Concomitant]
  9. CALCIUM [Concomitant]
  10. MULTIVITAMINS [Concomitant]
  11. HCTZ/TRIAMT [Concomitant]

REACTIONS (3)
  - Dizziness [Unknown]
  - Fatigue [Unknown]
  - Dysgeusia [Unknown]
